FAERS Safety Report 5195353-3 (Version None)
Quarter: 2006Q4

REPORT INFORMATION
  Report Type: 
  Country: None (occurrence: None)
  Receive Date: 20061229
  Receipt Date: 20061220
  Transmission Date: 20070319
  Serious: Yes (Other)
  Sender: FDA-Public Use
  Company Number: US-PFIZER INC-2006155135

PATIENT
  Sex: Female
  Weight: 77.6 kg

DRUGS (5)
  1. VERAPAMIL HYDROCHLORIDE [Suspect]
  2. ATENOLOL [Suspect]
  3. DIOVANE [Suspect]
  4. NORVASC [Concomitant]
     Indication: HYPERTENSION
  5. UNIVASC [Concomitant]

REACTIONS (1)
  - BLOOD PRESSURE INADEQUATELY CONTROLLED [None]
